FAERS Safety Report 4303023-6 (Version None)
Quarter: 2004Q1

REPORT INFORMATION
  Report Type: 
  Country: None (occurrence: None)
  Receive Date: 20040223
  Receipt Date: 20040223
  Transmission Date: 20041129
  Serious: Yes (Life-Threatening, Hospitalization)
  Sender: FDA-Public Use
  Company Number: None

PATIENT
  Age: 58 Year
  Sex: Male

DRUGS (6)
  1. CELEBREX [Suspect]
     Indication: ANGIOPATHY
     Dosage: 400 MG ORAL
     Route: 048
     Dates: start: 20030722, end: 20040206
  2. COMBIVENT [Concomitant]
  3. FLUNISOLIDE [Concomitant]
  4. OMEPRAZOLE [Concomitant]
  5. METOPROLOL [Concomitant]
  6. PREDNISONE [Concomitant]

REACTIONS (4)
  - HAEMOPTYSIS [None]
  - OPERATIVE HAEMORRHAGE [None]
  - THROMBOSIS [None]
  - VASCULAR PSEUDOANEURYSM [None]
